FAERS Safety Report 24328811 (Version 1)
Quarter: 2024Q3

REPORT INFORMATION
  Report Type: Spontaneous
  Country: CA (occurrence: CA)
  Receive Date: 20240917
  Receipt Date: 20240917
  Transmission Date: 20241017
  Serious: Yes (Hospitalization, Disabling)
  Sender: SANDOZ
  Company Number: CA-SANDOZ-SDZ2024CA080063

PATIENT
  Age: 87 Year
  Sex: Female
  Weight: 69 kg

DRUGS (9)
  1. TEGSEDI [Suspect]
     Active Substance: INOTERSEN SODIUM
     Indication: Hereditary neuropathic amyloidosis
     Dosage: 284 MG, QW
     Route: 058
  2. VITAMIN B12 [Suspect]
     Active Substance: CYANOCOBALAMIN
     Indication: Product used for unknown indication
     Dosage: UNK
     Route: 065
  3. ASPIRIN [Concomitant]
     Active Substance: ASPIRIN
     Indication: Product used for unknown indication
     Route: 065
  4. ASPIRIN [Concomitant]
     Active Substance: ASPIRIN
     Indication: Product used for unknown indication
     Route: 065
  5. LYRICA [Concomitant]
     Active Substance: PREGABALIN
     Indication: Product used for unknown indication
     Route: 065
  6. MELATONIN [Concomitant]
     Active Substance: MELATONIN
     Indication: Product used for unknown indication
     Route: 065
  7. MELATONIN [Concomitant]
     Active Substance: MELATONIN
     Indication: Product used for unknown indication
     Route: 065
  8. VITAMIN A [Concomitant]
     Active Substance: VITAMIN A
     Indication: Product used for unknown indication
     Route: 065
  9. VITAMIN A [Concomitant]
     Active Substance: VITAMIN A
     Indication: Product used for unknown indication
     Route: 065

REACTIONS (38)
  - Anaemia macrocytic [Unknown]
  - Red cell distribution width increased [Unknown]
  - White blood cell count increased [Unknown]
  - Band neutrophil count increased [Unknown]
  - Bladder hypertrophy [Unknown]
  - Dehydration [Unknown]
  - Extremity contracture [Unknown]
  - General physical health deterioration [Unknown]
  - Hypophagia [Unknown]
  - Metamyelocyte count increased [Unknown]
  - Platelet count increased [Unknown]
  - Bedridden [Unknown]
  - Decreased appetite [Unknown]
  - Decubitus ulcer [Unknown]
  - Duodenal ulcer [Unknown]
  - Dysphagia [Unknown]
  - Dyspnoea [Unknown]
  - Fatigue [Unknown]
  - Gastrointestinal ulcer haemorrhage [Unknown]
  - Haematocrit decreased [Unknown]
  - Haemoglobin decreased [Unknown]
  - Hepatic cyst [Unknown]
  - Hypersomnia [Unknown]
  - Hypotension [Unknown]
  - Lethargy [Unknown]
  - Lip blister [Unknown]
  - Lip dry [Unknown]
  - Lymphocyte count decreased [Unknown]
  - Mean cell volume increased [Unknown]
  - Myelocyte count increased [Unknown]
  - Neutrophil count increased [Unknown]
  - Neutrophil hypersegmented morphology present [Unknown]
  - Oropharyngeal pain [Unknown]
  - Polychromasia [Unknown]
  - Red blood cell count decreased [Unknown]
  - Red blood cell spherocytes present [Unknown]
  - Renal failure [Unknown]
  - Weight decreased [Unknown]
